FAERS Safety Report 9721511 (Version 1)
Quarter: 2013Q4

REPORT INFORMATION
  Report Type: Spontaneous
  Country: US (occurrence: US)
  Receive Date: 20131130
  Receipt Date: 20131130
  Transmission Date: 20140711
  Serious: Yes (Death)
  Sender: FDA-Public Use
  Company Number: US-INDICUS PHARMA-000202

PATIENT
  Age: 62 Year
  Sex: Male

DRUGS (17)
  1. INSULIN [Suspect]
  2. METFORMIN HYDROCHLORIDE [Suspect]
  3. AMLODIPINE [Suspect]
  4. CITALOPRAM [Suspect]
  5. SALICYLATES NOS [Suspect]
  6. CLONIDINE [Suspect]
  7. DOCUSATE [Suspect]
  8. LOVASTATIN [Suspect]
  9. IRON [Suspect]
  10. GABAPENTIN [Suspect]
  11. METOLAZONE [Suspect]
  12. FLUTICASONE W/SALMETEROL [Suspect]
  13. OMEPRAZOLE [Suspect]
  14. ALBUTEROL W/IPRATROPIUM [Suspect]
  15. METOPROLOL [Suspect]
     Dosage: EXTENDED RELEASE
  16. FAMOTIDINE [Suspect]
  17. FUROSEMIDE [Suspect]
     Route: 048

REACTIONS (1)
  - Toxicity to various agents [Fatal]
